FAERS Safety Report 20308525 (Version 3)
Quarter: 2022Q1

REPORT INFORMATION
  Report Type: Spontaneous
  Country: US (occurrence: US)
  Receive Date: 20220107
  Receipt Date: 20220331
  Transmission Date: 20220424
  Serious: No
  Sender: FDA-Public Use
  Company Number: US-PFIZER INC-202101773345

PATIENT
  Age: 7 Year
  Sex: Female

DRUGS (2)
  1. GENOTROPIN [Suspect]
     Active Substance: SOMATROPIN
     Indication: Growth disorder
     Dosage: ALTERNATE 0.8 AND 1.0 MG 6 DAYS PER WEEK
  2. GENOTROPIN [Suspect]
     Active Substance: SOMATROPIN
     Dosage: ALTERNATE 0.8 AND 1.0 MG 6 DAYS PER WEEK

REACTIONS (4)
  - Drug ineffective [Unknown]
  - Device physical property issue [Unknown]
  - Device leakage [Unknown]
  - Wrong technique in device usage process [Unknown]
